FAERS Safety Report 9510448 (Version 2)
Quarter: 2013Q3

REPORT INFORMATION
  Report Type: Spontaneous
  Country: US (occurrence: US)
  Receive Date: 20130909
  Receipt Date: 20130909
  Transmission Date: 20140515
  Serious: Yes (Other)
  Sender: FDA-Public Use
  Company Number: CHPA2010US08759

PATIENT
  Age: 59 Year
  Sex: Female
  Weight: 47.62 kg

DRUGS (3)
  1. BENEFIBER FIBER SUPP VIT B + FOLIC ACID [Suspect]
     Indication: PROPHYLAXIS
     Dosage: 2 TSP, BID
     Route: 048
     Dates: start: 201005, end: 201005
  2. BENEFIBER W/ WHEAT DEXTRIN [Suspect]
     Indication: IRRITABLE BOWEL SYNDROME
     Dosage: 3 TSP, TID
     Route: 048
  3. BENEFIBER W/ WHEAT DEXTRIN [Suspect]
     Indication: CONSTIPATION
     Dosage: 2 TSP, BID
     Route: 048
     Dates: start: 20130827, end: 20130829

REACTIONS (12)
  - Hypersensitivity [Not Recovered/Not Resolved]
  - Pruritus [Not Recovered/Not Resolved]
  - Erythema [Not Recovered/Not Resolved]
  - Fatigue [Not Recovered/Not Resolved]
  - Chest discomfort [Not Recovered/Not Resolved]
  - Dyspnoea [Not Recovered/Not Resolved]
  - Abdominal pain upper [Not Recovered/Not Resolved]
  - Abdominal distension [Not Recovered/Not Resolved]
  - Irritability [Not Recovered/Not Resolved]
  - Insomnia [Not Recovered/Not Resolved]
  - Off label use [Unknown]
  - Therapeutic response unexpected [Unknown]
